FAERS Safety Report 21365700 (Version 1)
Quarter: 2022Q3

REPORT INFORMATION
  Report Type: Spontaneous
  Country: CN (occurrence: CN)
  Receive Date: 20220922
  Receipt Date: 20220922
  Transmission Date: 20221027
  Serious: Yes (Hospitalization)
  Sender: FDA-Public Use
  Company Number: CN-Merck Healthcare KGaA-9351077

PATIENT
  Age: 55 Year
  Sex: Male
  Weight: 50 kg

DRUGS (4)
  1. ERBITUX [Suspect]
     Active Substance: CETUXIMAB
     Indication: Rectal cancer
     Dosage: 800 MG, DAILY (ALONG WITH 0.9% SODIUM CHLORIDE INJECTION 250 ML)
     Route: 041
     Dates: start: 20220725, end: 20220725
  2. IRINOTECAN HYDROCHLORIDE [Suspect]
     Active Substance: IRINOTECAN HYDROCHLORIDE
     Indication: Rectal cancer
     Dosage: 280 MG, DAILY(ALONG WITH 0.9% SODIUM CHLORIDE INJECTION 250 ML )
     Route: 041
     Dates: start: 20220725, end: 20220725
  3. LEUCOVORIN CALCIUM [Concomitant]
     Active Substance: LEUCOVORIN CALCIUM
     Indication: Rectal cancer
     Dosage: 600 MG, UNKNOWN (ALONG WITH 0.9% SODIUM CHLORIDE INJECTION 250 ML)
     Route: 065
     Dates: start: 20220725
  4. FLUOROURACIL [Concomitant]
     Active Substance: FLUOROURACIL
     Indication: Rectal cancer
     Dosage: 500 MG, UNKNOWN(ALONG WITH 0.9% SODIUM CHLORIDE INJECTION 50 ML )
     Route: 065
     Dates: start: 20220725

REACTIONS (1)
  - Myelosuppression [Recovering/Resolving]

NARRATIVE: CASE EVENT DATE: 20220803
